FAERS Safety Report 4333005-X (Version None)
Quarter: 2004Q2

REPORT INFORMATION
  Report Type: 
  Country: None (occurrence: None)
  Receive Date: 20040406
  Receipt Date: 20040323
  Transmission Date: 20050107
  Serious: Yes (Hospitalization, Other)
  Sender: FDA-Public Use
  Company Number: PHBS2004BR04002

PATIENT
  Age: 22 Year
  Sex: Female
  Weight: 54 kg

DRUGS (3)
  1. PARLODEL [Suspect]
     Indication: HYPERPROLACTINAEMIA
     Dosage: 5 MG, QD
     Route: 048
     Dates: start: 20040303, end: 20040303
  2. TAPAZOL [Concomitant]
     Indication: THYROID DISORDER
     Dosage: 1/2 TABLET EVERY 2 DAYS
  3. GRACIAL [Concomitant]
     Indication: CONTRACEPTION
     Dosage: 1 TABLET A DAY

REACTIONS (10)
  - ASTHENIA [None]
  - DRUG INTOLERANCE [None]
  - DYSPNOEA [None]
  - HYPERHIDROSIS [None]
  - INSOMNIA [None]
  - MALAISE [None]
  - NAUSEA [None]
  - PALPITATIONS [None]
  - TONGUE OEDEMA [None]
  - URTICARIA [None]
